FAERS Safety Report 9855229 (Version 1)
Quarter: 2014Q1

REPORT INFORMATION
  Report Type: Spontaneous
  Country: FR (occurrence: FR)
  Receive Date: 20140130
  Receipt Date: 20140130
  Transmission Date: 20141002
  Serious: Yes (Hospitalization, Disabling)
  Sender: FDA-Public Use
  Company Number: FR-B.I. PHARMACEUTICALS,INC./RIDGEFIELD-2014-BI-02980FF

PATIENT
  Age: 83 Year
  Sex: Female

DRUGS (7)
  1. PRADAXA [Suspect]
     Indication: ATRIAL FIBRILLATION
     Dosage: 220 MG
     Route: 048
     Dates: start: 201211, end: 201307
  2. EUPHYLLINE [Concomitant]
  3. SYMBICORT [Concomitant]
  4. SPIRIVA [Concomitant]
  5. DIFFU-K [Concomitant]
  6. CACIT B3 [Concomitant]
  7. VIT B12 [Concomitant]

REACTIONS (1)
  - Ischaemic stroke [Recovered/Resolved]
